FAERS Safety Report 11113547 (Version 1)
Quarter: 2015Q2

REPORT INFORMATION
  Report Type: Report from Study
  Country: ES (occurrence: ES)
  Receive Date: 20150514
  Receipt Date: 20150514
  Transmission Date: 20150821
  Serious: Yes (Hospitalization)
  Sender: FDA-Public Use
  Company Number: ES-JNJFOC-20150506394

PATIENT
  Age: 90 Year
  Sex: Female

DRUGS (6)
  1. HIDROFEROL [Concomitant]
     Active Substance: CALCIFEDIOL
     Indication: BONE DECALCIFICATION
     Route: 065
  2. OPTOVITE B12 [Concomitant]
     Indication: IRON DEFICIENCY
     Route: 065
  3. TORSEMIDE. [Concomitant]
     Active Substance: TORSEMIDE
     Indication: PRODUCT USED FOR UNKNOWN INDICATION
     Route: 065
  4. CARDURA [Concomitant]
     Active Substance: DOXAZOSIN MESYLATE
     Indication: HYPERTENSION
     Route: 065
  5. XARELTO [Suspect]
     Active Substance: RIVAROXABAN
     Indication: PRODUCT USED FOR UNKNOWN INDICATION
     Route: 048
     Dates: start: 20150407, end: 20150428
  6. PARACETAMOL [Concomitant]
     Active Substance: ACETAMINOPHEN
     Indication: PAIN
     Route: 065

REACTIONS (4)
  - Infrequent bowel movements [Recovered/Resolved]
  - Vomiting [Recovered/Resolved]
  - Eructation [Recovered/Resolved]
  - Gastrointestinal motility disorder [Recovered/Resolved]

NARRATIVE: CASE EVENT DATE: 20150428
